FAERS Safety Report 4510533-5 (Version None)
Quarter: 2004Q4

REPORT INFORMATION
  Report Type: 
  Country: None (occurrence: None)
  Receive Date: 20041122
  Receipt Date: 20041108
  Transmission Date: 20050328
  Serious: Yes (Other)
  Sender: FDA-Public Use
  Company Number: 2004089226

PATIENT
  Sex: Female

DRUGS (1)
  1. VISINE II EYE DROPS [Suspect]
     Indication: EYE REDNESS
     Dosage: OPHTHALMIC
     Route: 047

REACTIONS (2)
  - EYE OPERATION [None]
  - LENS IMPLANT [None]
